FAERS Safety Report 6679664-8 (Version None)
Quarter: 2010Q2

REPORT INFORMATION
  Report Type: 
  Country: None (occurrence: None)
  Receive Date: 20100413
  Receipt Date: 20100412
  Transmission Date: 20101027
  Serious: Yes (Hospitalization)
  Sender: FDA-Public Use
  Company Number: B0645543A

PATIENT
  Sex: Male

DRUGS (11)
  1. AUGMENTIN '125' [Suspect]
     Route: 048
     Dates: start: 20091005, end: 20091028
  2. VASTAREL [Concomitant]
     Dosage: 20MG THREE TIMES PER DAY
     Route: 048
     Dates: end: 20091028
  3. CORVASAL [Concomitant]
     Dosage: 2MG THREE TIMES PER DAY
     Route: 048
     Dates: end: 20091028
  4. COZAAR [Concomitant]
     Dosage: 100MG PER DAY
     Route: 048
     Dates: end: 20091028
  5. METFORMIN HCL [Concomitant]
     Dosage: 850MG PER DAY
     Route: 048
     Dates: end: 20091028
  6. SECTRAL [Concomitant]
     Dosage: 200MG TWICE PER DAY
     Route: 048
     Dates: end: 20091028
  7. PRAVASTATIN [Concomitant]
     Dosage: 20MG PER DAY
     Route: 048
     Dates: end: 20091028
  8. SPIRIVA [Concomitant]
     Dosage: 18MCG PER DAY
     Route: 055
     Dates: end: 20091028
  9. SYMBICORT [Concomitant]
     Dosage: 1UNIT TWICE PER DAY
     Route: 055
     Dates: end: 20091028
  10. KARDEGIC [Concomitant]
     Dosage: 160MG PER DAY
     Route: 048
  11. ATARAX [Concomitant]
     Indication: PREMEDICATION
     Dates: start: 20091117

REACTIONS (36)
  - ACUTE PULMONARY OEDEMA [None]
  - ALTERED STATE OF CONSCIOUSNESS [None]
  - CLOSTRIDIUM DIFFICILE COLITIS [None]
  - CONDITION AGGRAVATED [None]
  - CONVULSION [None]
  - DERMATITIS EXFOLIATIVE [None]
  - DRUG RASH WITH EOSINOPHILIA AND SYSTEMIC SYMPTOMS [None]
  - DRY SKIN [None]
  - EOSINOPHILIA [None]
  - EXCORIATION [None]
  - EYELID OEDEMA [None]
  - FACE OEDEMA [None]
  - GENERAL PHYSICAL HEALTH DETERIORATION [None]
  - HEPATOCELLULAR INJURY [None]
  - HYPERBILIRUBINAEMIA [None]
  - HYPERTHERMIA [None]
  - HYPOCALCAEMIA [None]
  - HYPOMAGNESAEMIA [None]
  - HYPOPHOSPHATAEMIA [None]
  - INFLAMMATION [None]
  - INTESTINAL OBSTRUCTION [None]
  - JAUNDICE CHOLESTATIC [None]
  - LEFT VENTRICULAR DYSFUNCTION [None]
  - LICHENOID KERATOSIS [None]
  - MUCOUS MEMBRANE DISORDER [None]
  - NORMOCHROMIC NORMOCYTIC ANAEMIA [None]
  - PROTEINURIA [None]
  - PRURITUS [None]
  - PULMONARY HYPERTENSION [None]
  - RASH MACULO-PAPULAR [None]
  - RENAL FAILURE ACUTE [None]
  - RESPIRATORY DISORDER [None]
  - RESPIRATORY DISTRESS [None]
  - SKIN EXFOLIATION [None]
  - THROMBOCYTOPENIA [None]
  - TOXIC SKIN ERUPTION [None]
